FAERS Safety Report 8239528-5 (Version None)
Quarter: 2012Q1

REPORT INFORMATION
  Report Type: 
  Country: None (occurrence: None)
  Receive Date: 20120328
  Receipt Date: 20120326
  Transmission Date: 20120608
  Serious: Yes (Hospitalization)
  Sender: FDA-Public Use
  Company Number: US-PFIZER INC-2011080002

PATIENT
  Age: 41 Year
  Sex: Female
  Weight: 100 kg

DRUGS (5)
  1. EMBEDA [Suspect]
     Indication: FIBROMYALGIA
     Dosage: UNK
     Route: 048
     Dates: end: 20110301
  2. NALTREXONE HCL [Suspect]
     Indication: BACK PAIN
  3. EMBEDA [Suspect]
     Indication: BACK PAIN
  4. MORPHINE SULFATE [Suspect]
     Dosage: UNK
     Dates: start: 20110322
  5. NALTREXONE HCL [Suspect]
     Indication: FIBROMYALGIA
     Dosage: UNK
     Dates: start: 20110322

REACTIONS (1)
  - WITHDRAWAL SYNDROME [None]
